FAERS Safety Report 8194147 (Version 10)
Quarter: 2013Q1

REPORT INFORMATION
  Report Type: Report from Study
  Country: US (occurrence: US)
  Receive Date: 20111021
  Receipt Date: 20130115
  Transmission Date: 20140127
  Serious: Yes (Hospitalization, Congenital Anomaly)
  Sender: FDA-Public Use
  Company Number: US-ROCHE-GNE323488

PATIENT
  Sex: Male

DRUGS (1)
  1. OMALIZUMAB [Suspect]
     Indication: ASTHMA
     Dosage: LATS DOSE PRIOR TO SAE 15/AUG/2011, LAST DOSE PRIOR TO SAE:03/NOV/2011
     Route: 064
     Dates: start: 20060324

REACTIONS (5)
  - Bronchomalacia [Not Recovered/Not Resolved]
  - Pneumonia [Recovered/Resolved]
  - Bronchiolitis [Recovered/Resolved]
  - Laryngeal cleft [Recovered/Resolved]
  - Maternal exposure timing unspecified [Unknown]
